FAERS Safety Report 6175385-9 (Version None)
Quarter: 2009Q2

REPORT INFORMATION
  Report Type: 
  Country: None (occurrence: None)
  Receive Date: 20090429
  Receipt Date: 20090414
  Transmission Date: 20091009
  Serious: Yes (Death)
  Sender: FDA-Public Use
  Company Number: AE 2009-052

PATIENT
  Age: 49 Year
  Sex: Male

DRUGS (17)
  1. FAZACLO ODT [Suspect]
     Indication: SCHIZOAFFECTIVE DISORDER
     Dosage: 700 MG QHS PO
     Route: 048
     Dates: start: 20070101, end: 20090207
  2. SUSPAR DDVAP [Concomitant]
  3. ATIVAN [Concomitant]
  4. VALIUM [Concomitant]
  5. HYTRIN [Concomitant]
  6. ZOLOFT [Concomitant]
  7. ALBUTEROL MDI INHALER [Concomitant]
  8. CLOMIPRAMINE HCL [Concomitant]
  9. KLOR-CON [Concomitant]
  10. HYDROCHLOROTHIAZIDE [Concomitant]
  11. MULTI-VITAMIN [Concomitant]
  12. ASPIRIN [Concomitant]
  13. LOVASTATIN [Concomitant]
  14. PRILOSEC [Concomitant]
  15. TOPROL-XL [Concomitant]
  16. ACETAMINOPHEN [Concomitant]
  17. MILK OF OF MAGNESIA [Concomitant]

REACTIONS (2)
  - DRUG TOXICITY [None]
  - EMPHYSEMA [None]
